FAERS Safety Report 23089550 (Version 2)
Quarter: 2023Q4

REPORT INFORMATION
  Report Type: Spontaneous
  Country: US (occurrence: US)
  Receive Date: 20231020
  Receipt Date: 20231114
  Transmission Date: 20240110
  Serious: Yes (Other)
  Sender: FDA-Public Use
  Company Number: US-SMITH AND NEPHEW, INC-2023SMT00075

PATIENT
  Sex: Female

DRUGS (1)
  1. COLLAGENASE SANTYL [Suspect]
     Active Substance: COLLAGENASE CLOSTRIDIUM HISTOLYTICUM
     Dosage: UNK
     Dates: start: 2023

REACTIONS (7)
  - Sepsis [Recovering/Resolving]
  - Pseudomonas infection [Recovering/Resolving]
  - Staphylococcal infection [Recovering/Resolving]
  - Illness [Recovering/Resolving]
  - Product dose omission issue [Recovered/Resolved]
  - Product leakage [Not Recovered/Not Resolved]
  - Suspected product tampering [Not Recovered/Not Resolved]

NARRATIVE: CASE EVENT DATE: 20230101
